FAERS Safety Report 5103354-6 (Version None)
Quarter: 2006Q3

REPORT INFORMATION
  Report Type: 
  Country: None (occurrence: None)
  Receive Date: 20060908
  Receipt Date: 20060828
  Transmission Date: 20061208
  Serious: Yes (Life-Threatening)
  Sender: FDA-Public Use
  Company Number: DE-2006-024819

PATIENT
  Sex: Female

DRUGS (1)
  1. MAGNEVIST [Suspect]
     Dosage: 1 DOSE

REACTIONS (4)
  - BRONCHOSPASM [None]
  - CIRCULATORY COLLAPSE [None]
  - DYSPNOEA [None]
  - URTICARIA [None]
